FAERS Safety Report 17134555 (Version 3)
Quarter: 2020Q1

REPORT INFORMATION
  Report Type: Spontaneous
  Country: GB (occurrence: GB)
  Receive Date: 20191210
  Receipt Date: 20200304
  Transmission Date: 20200409
  Serious: Yes (Hospitalization)
  Sender: FDA-Public Use
  Company Number: GB-VERTEX PHARMACEUTICALS-2019-011627

PATIENT
  Sex: Male

DRUGS (2)
  1. KALYDECO [Suspect]
     Active Substance: IVACAFTOR
     Indication: CYSTIC FIBROSIS
     Dosage: ONE TABLET IN THE EVENING WITH FAT CONTANING FOOD
     Route: 048
     Dates: start: 201908
  2. SYMKEVI [Suspect]
     Active Substance: IVACAFTOR\TEZACAFTOR
     Indication: CYSTIC FIBROSIS
     Dosage: ONE TABLET IN THE MORNING WITH FAT CONTAINING FOOD
     Route: 048
     Dates: start: 201908

REACTIONS (7)
  - Productive cough [Not Recovered/Not Resolved]
  - Lower respiratory tract infection [Recovering/Resolving]
  - Hospitalisation [Recovering/Resolving]
  - Cough [Not Recovered/Not Resolved]
  - Sputum discoloured [Recovering/Resolving]
  - Weight decreased [Recovered/Resolved]
  - Sputum increased [Recovering/Resolving]

NARRATIVE: CASE EVENT DATE: 2019
